FAERS Safety Report 7561632-5 (Version None)
Quarter: 2011Q2

REPORT INFORMATION
  Report Type: 
  Country: None (occurrence: None)
  Receive Date: 20110621
  Receipt Date: 20110614
  Transmission Date: 20111010
  Serious: Yes (Hospitalization)
  Sender: FDA-Public Use
  Company Number: US-US-EMD SERONO, INC.-7065475

PATIENT
  Sex: Female

DRUGS (3)
  1. REBIF [Suspect]
     Indication: MULTIPLE SCLEROSIS
     Dates: start: 20110131, end: 20110401
  2. REBIF [Suspect]
     Dates: end: 20110501
  3. REBIF [Suspect]

REACTIONS (4)
  - CONVULSION [None]
  - CEREBROVASCULAR ACCIDENT [None]
  - BRAIN OEDEMA [None]
  - INFLUENZA [None]
